FAERS Safety Report 16555010 (Version 1)
Quarter: 2019Q3

REPORT INFORMATION
  Report Type: Spontaneous
  Country: RU (occurrence: RU)
  Receive Date: 20190710
  Receipt Date: 20190710
  Transmission Date: 20191004
  Serious: Yes (Other)
  Sender: FDA-Public Use
  Company Number: RU-SA-2019SA183316

PATIENT
  Age: 32 Year
  Sex: Female

DRUGS (1)
  1. ZODAC [Suspect]
     Active Substance: CETIRIZINE HYDROCHLORIDE
     Indication: HYPERSENSITIVITY
     Dosage: 1 DF, QD
     Route: 048
     Dates: start: 20190703, end: 20190703

REACTIONS (4)
  - Throat irritation [Recovering/Resolving]
  - Dysgeusia [Recovering/Resolving]
  - Aphonia [Recovering/Resolving]
  - Lymphadenopathy [Not Recovered/Not Resolved]

NARRATIVE: CASE EVENT DATE: 20190703
